FAERS Safety Report 4604804-1 (Version None)
Quarter: 2005Q2

REPORT INFORMATION
  Report Type: 
  Country: None (occurrence: None)
  Receive Date: 20050217
  Receipt Date: 20041102
  Transmission Date: 20051028
  Serious: No
  Sender: FDA-Public Use
  Company Number: S04-USA-07323-01

PATIENT
  Age: 85 Year
  Sex: Female

DRUGS (8)
  1. NAMENDA [Suspect]
     Indication: DEMENTIA ALZHEIMER'S TYPE
     Dosage: 5 MG QD PO
     Route: 048
     Dates: start: 20041015, end: 20041021
  2. NAMENDA [Suspect]
     Indication: DEMENTIA ALZHEIMER'S TYPE
     Dosage: 10 MG QD PO
     Route: 048
     Dates: start: 20041022, end: 20041028
  3. NAMENDA [Suspect]
     Indication: DEMENTIA ALZHEIMER'S TYPE
     Dosage: 15 MG QD PO
     Route: 048
     Dates: start: 20041029
  4. BLOOD PRESSURE MEDICATION (NOS) [Concomitant]
  5. THYROID MEDICATION (NOS) [Concomitant]
  6. ANTIDEPRESSANT (NOS) [Concomitant]
  7. OS-CAL [Concomitant]
  8. MULTI-VITAMIN [Concomitant]

REACTIONS (2)
  - DIARRHOEA [None]
  - FATIGUE [None]
